FAERS Safety Report 15546787 (Version 1)
Quarter: 2018Q4

REPORT INFORMATION
  Report Type: Spontaneous
  Country: PA (occurrence: PA)
  Receive Date: 20181024
  Receipt Date: 20181024
  Transmission Date: 20190205
  Serious: Yes (Death)
  Sender: FDA-Public Use
  Company Number: None

PATIENT
  Age: 61 Year
  Sex: Male
  Weight: 118 kg

DRUGS (10)
  1. FUROSEMIDE. [Concomitant]
     Active Substance: FUROSEMIDE
  2. FISH OIL [Concomitant]
     Active Substance: FISH OIL
  3. OCUVITE [Concomitant]
     Active Substance: VITAMINS
  4. COLLAGEN PILLS [Concomitant]
  5. DIGOXIN. [Concomitant]
     Active Substance: DIGOXIN
  6. GLICAZIDE [Concomitant]
     Active Substance: GLICLAZIDE
  7. EXFORGE [Concomitant]
     Active Substance: AMLODIPINE BESYLATE\VALSARTAN
  8. CARDIOASPIRIN [Concomitant]
     Active Substance: ASPIRIN
  9. CENTRUM [Concomitant]
     Active Substance: VITAMINS
  10. XIGDUO XR [Suspect]
     Active Substance: DAPAGLIFLOZIN PROPANEDIOL\METFORMIN HYDROCHLORIDE
     Indication: DIABETES MELLITUS INADEQUATE CONTROL
     Route: 048

REACTIONS (2)
  - Septic shock [None]
  - Fournier^s gangrene [None]

NARRATIVE: CASE EVENT DATE: 20180418
